FAERS Safety Report 4682896-1 (Version None)
Quarter: 2005Q2

REPORT INFORMATION
  Report Type: 
  Country: None (occurrence: None)
  Receive Date: 20050531
  Receipt Date: 20050314
  Transmission Date: 20051028
  Serious: Yes (Hospitalization)
  Sender: FDA-Public Use
  Company Number: 200512174US

PATIENT

DRUGS (1)
  1. LOVENOX [Suspect]
     Indication: HIP ARTHROPLASTY

REACTIONS (1)
  - PLATELET COUNT DECREASED [None]
